FAERS Safety Report 5862292-1 (Version None)
Quarter: 2008Q3

REPORT INFORMATION
  Report Type: 
  Country: None (occurrence: None)
  Receive Date: 20080826
  Receipt Date: 20080813
  Transmission Date: 20090109
  Serious: Yes (Other)
  Sender: FDA-Public Use
  Company Number: 2008BI020805

PATIENT
  Sex: Female

DRUGS (3)
  1. AVONEX [Suspect]
     Indication: RELAPSING-REMITTING MULTIPLE SCLEROSIS
     Dosage: QW;IM
     Route: 030
     Dates: start: 20051201, end: 20080501
  2. RAMIPRIL [Concomitant]
  3. METOPROLOL [Concomitant]

REACTIONS (1)
  - POLYARTHRITIS [None]
